FAERS Safety Report 16411715 (Version 17)
Quarter: 2022Q2

REPORT INFORMATION
  Report Type: Report from Study
  Country: GB (occurrence: GB)
  Receive Date: 20190610
  Receipt Date: 20220509
  Transmission Date: 20220721
  Serious: Yes (Death, Hospitalization, Other)
  Sender: FDA-Public Use
  Company Number: GB-ROCHE-1588876

PATIENT
  Age: 43 Year
  Sex: Female
  Weight: 80.6 kg

DRUGS (55)
  1. TRASTUZUMAB [Suspect]
     Active Substance: TRASTUZUMAB
     Indication: Breast cancer metastatic
     Dosage: 600 MILLIGRAM, Q3W (600 MG, TIW (ON 08/MAY/2015, MOST RECENT DOSE)
     Route: 058
     Dates: start: 20150226, end: 20150508
  2. TRASTUZUMAB [Suspect]
     Active Substance: TRASTUZUMAB
     Dosage: 290 MILLIGRAM, Q3WK
     Route: 042
     Dates: start: 20150604, end: 20150806
  3. PACLITAXEL [Suspect]
     Active Substance: PACLITAXEL
     Indication: Breast cancer metastatic
     Dosage: 192.5 MILLIGRAM, Q3W (MOST RECENT DOSE RECEIVED ON 22/05/2015)
     Route: 042
     Dates: start: 20150226, end: 20150522
  4. PERTUZUMAB [Suspect]
     Active Substance: PERTUZUMAB
     Indication: Breast cancer metastatic
     Dosage: 840 MILLIGRAM, Q3W (LOADING DOSE), 840 MG, TIW
     Route: 042
     Dates: start: 20150226
  5. PERTUZUMAB [Suspect]
     Active Substance: PERTUZUMAB
     Dosage: 420 MILLIGRAM, QW (ON 08/MAY/2015, SHE RECEIVED MOST RECENT DOSE OF PERTUZUMAB)
     Route: 042
     Dates: end: 20150508
  6. PERTUZUMAB [Suspect]
     Active Substance: PERTUZUMAB
     Dosage: 420 MILLIGRAM, QW
     Route: 042
     Dates: end: 20150508
  7. HYALURONIDASE (HUMAN RECOMBINANT) [Suspect]
     Active Substance: HYALURONIDASE (HUMAN RECOMBINANT)
     Indication: Breast cancer metastatic
     Dosage: 600 MILLIGRAM, Q3W
     Route: 058
     Dates: start: 20150226, end: 20150508
  8. HYALURONIDASE (HUMAN RECOMBINANT) [Suspect]
     Active Substance: HYALURONIDASE (HUMAN RECOMBINANT)
     Indication: Breast cancer metastatic
     Dosage: 600 MILLIGRAM, Q3W (ON 08/MAY/2015, MOST RECENT DOSE)
     Route: 058
     Dates: start: 20150226, end: 20150508
  9. ADO-TRASTUZUMAB EMTANSINE [Suspect]
     Active Substance: ADO-TRASTUZUMAB EMTANSINE
     Indication: Breast cancer metastatic
     Dosage: 290 MILLIGRAM, Q3W (START 04-JUN-2015, ON 06/AUG/2015, MOST RECENT DOSE)
     Route: 042
  10. ACETAMINOPHEN [Concomitant]
     Active Substance: ACETAMINOPHEN
     Indication: Headache
     Dosage: 2000 MILLIGRAM
     Route: 048
     Dates: start: 201502
  11. ACETAMINOPHEN [Concomitant]
     Active Substance: ACETAMINOPHEN
     Dosage: 1 GRAM, QID (1 G, 4X/DAY) (0.25 DAY)
     Route: 048
     Dates: start: 20150823, end: 20150825
  12. BISOPROLOL [Concomitant]
     Active Substance: BISOPROLOL
     Indication: Product used for unknown indication
     Dosage: 10 MILLIGRAM
     Route: 065
     Dates: start: 201504, end: 20150810
  13. BISOPROLOL [Concomitant]
     Active Substance: BISOPROLOL
     Dosage: 5 MILLIGRAM, QD
     Route: 048
     Dates: start: 20150811, end: 20150812
  14. BISOPROLOL [Concomitant]
     Active Substance: BISOPROLOL
     Dosage: 5 MILLIGRAM, QD
     Route: 048
     Dates: start: 20150815
  15. BISOPROLOL [Concomitant]
     Active Substance: BISOPROLOL
     Dosage: 5 MILLIGRAM, QD
     Route: 048
     Dates: start: 201504, end: 20150810
  16. BISOPROLOL [Concomitant]
     Active Substance: BISOPROLOL
     Dosage: UNK (ADDITIONAL INFO: ALSO RECEIVED ON 15-AUG-2015)
     Route: 065
     Dates: start: 20150815
  17. BISOPROLOL [Concomitant]
     Active Substance: BISOPROLOL
     Dosage: UNK
     Route: 065
     Dates: start: 201504, end: 20150810
  18. BISOPROLOL [Concomitant]
     Active Substance: BISOPROLOL
     Dosage: 10 MILLIGRAM
     Route: 065
     Dates: start: 201504, end: 20150810
  19. ALBUTEROL [Concomitant]
     Active Substance: ALBUTEROL
     Indication: Malaise
     Dosage: 2.5 MILLIGRAM, UNK (NEBULIZED)
     Dates: start: 201504
  20. ALBUTEROL [Concomitant]
     Active Substance: ALBUTEROL
     Dosage: INHALATION
     Route: 055
     Dates: start: 20150602
  21. ALBUTEROL [Concomitant]
     Active Substance: ALBUTEROL
     Dosage: UNK MG
     Route: 065
     Dates: start: 201504
  22. ALBUTEROL [Concomitant]
     Active Substance: ALBUTEROL
     Dosage: INHALATION
     Dates: start: 20150602
  23. GRANISETRON [Concomitant]
     Active Substance: GRANISETRON
     Indication: Product used for unknown indication
     Dosage: 1 MILLIGRAM, ONCE
     Route: 042
     Dates: start: 20150226, end: 20150806
  24. MORPHINE SULFATE [Concomitant]
     Active Substance: MORPHINE SULFATE
     Indication: Product used for unknown indication
     Dosage: 5 MILLILITER
     Route: 048
     Dates: start: 201502
  25. MORPHINE SULFATE [Concomitant]
     Active Substance: MORPHINE SULFATE
     Dosage: UNK
     Dates: start: 201502
  26. OXYGEN [Concomitant]
     Active Substance: OXYGEN
     Indication: Product used for unknown indication
     Dosage: INHALANT
     Route: 065
     Dates: start: 201502
  27. OXYGEN [Concomitant]
     Active Substance: OXYGEN
     Dosage: 8 LITER (8 L, UNK (INHALANT))
     Route: 055
     Dates: start: 20150410
  28. OXYGEN [Concomitant]
     Active Substance: OXYGEN
     Dosage: 8 LITER(INHALANT)
     Route: 065
     Dates: start: 201502
  29. OXYGEN [Concomitant]
     Active Substance: OXYGEN
     Dosage: UNK (8)
     Route: 055
     Dates: start: 20150410
  30. OXYGEN [Concomitant]
     Active Substance: OXYGEN
     Dosage: UNK
     Route: 065
  31. DOXYCYCLINE [Concomitant]
     Active Substance: DOXYCYCLINE
     Indication: Malaise
     Dosage: UNK, START 03-JUN-2015
     Route: 048
     Dates: end: 20150608
  32. DOXYCYCLINE [Concomitant]
     Active Substance: DOXYCYCLINE
     Dosage: 1 DOSAGE FORM, QD, START MAY-2015
  33. DOXYCYCLINE [Concomitant]
     Active Substance: DOXYCYCLINE
     Dosage: UNK UNK, QD (START DATE: MAY-2015)
     Route: 065
  34. DEXAMETHASONE [Concomitant]
     Active Substance: DEXAMETHASONE
     Indication: Confusional state
     Dosage: 1 DOSAGE FORM, QD (1X/DAY)
     Route: 048
     Dates: start: 201502, end: 20150823
  35. DEXAMETHASONE [Concomitant]
     Active Substance: DEXAMETHASONE
     Dosage: UNK UNK, QD
     Route: 048
     Dates: start: 201502, end: 20150823
  36. DEXAMETHASONE [Concomitant]
     Active Substance: DEXAMETHASONE
     Indication: Confusional state
     Dosage: UNK (START 23-AUG-2015 INTRAVENOUS )
     Route: 042
     Dates: end: 20150823
  37. LORAZEPAM [Concomitant]
     Active Substance: LORAZEPAM
     Indication: Product used for unknown indication
     Dosage: 1 MILLIGRAM, UNK
     Route: 048
     Dates: start: 201502
  38. METOCLOPRAMIDE [Concomitant]
     Active Substance: METOCLOPRAMIDE
     Indication: Product used for unknown indication
     Dosage: 10 MILLIGRAM, TID
     Route: 048
     Dates: start: 20150226, end: 201508
  39. METOCLOPRAMIDE [Concomitant]
     Active Substance: METOCLOPRAMIDE
     Dosage: 30 MILLIGRAM, QD (10 MG, TID)
     Route: 048
     Dates: start: 20150226, end: 201508
  40. METOCLOPRAMIDE [Concomitant]
     Active Substance: METOCLOPRAMIDE
     Dosage: 10 MILLIGRAM, 033 DAY
     Route: 048
     Dates: start: 20150226, end: 201508
  41. HYDROCORTISONE [Concomitant]
     Active Substance: HYDROCORTISONE
     Indication: Product used for unknown indication
     Dosage: 100 MILLIGRAM, QD (100 MG, UNK (ONCE)
     Route: 042
     Dates: start: 20150226, end: 20150806
  42. CHLORPHENIRAMINE MALEATE [Concomitant]
     Active Substance: CHLORPHENIRAMINE MALEATE
     Indication: Product used for unknown indication
     Dosage: 10 MILLIGRAM, ONCE (10 MG, UNK (ONCE)
     Route: 042
     Dates: start: 20150226, end: 20150806
  43. TRAMADOL [Concomitant]
     Active Substance: TRAMADOL
     Indication: Product used for unknown indication
     Dosage: 50 MILLIGRAM, UNK
     Route: 048
     Dates: start: 201502
  44. ONDANSETRON [Concomitant]
     Active Substance: ONDANSETRON
     Indication: Product used for unknown indication
     Dosage: 48 MILLIGRAM
     Route: 065
     Dates: start: 201502
  45. ONDANSETRON [Concomitant]
     Active Substance: ONDANSETRON
     Dosage: 8 MEGABECQUEREL, BID (0.5 DAY), FEB-2015,48 MG
     Route: 048
     Dates: start: 20150226, end: 20150424
  46. ONDANSETRON [Concomitant]
     Active Substance: ONDANSETRON
     Dosage: 16 MEGABECQUEREL, QD
     Route: 048
     Dates: start: 20150226, end: 20150424
  47. DALTEPARIN [Concomitant]
     Active Substance: DALTEPARIN
     Indication: Product used for unknown indication
     Dosage: 1 DOSAGE FORM, 15000 UNIT QD
     Route: 058
     Dates: start: 201504
  48. SENNA [Concomitant]
     Active Substance: SENNA LEAF\SENNOSIDES\SENNOSIDES A AND B
     Dosage: 7.5 MILLIGRAM, UNK
     Route: 048
     Dates: start: 201504
  49. SENNA [Concomitant]
     Active Substance: SENNA LEAF\SENNOSIDES\SENNOSIDES A AND B
     Dosage: 7.5 MILLIGRAM, UNK
     Route: 048
     Dates: start: 201504
  50. ZOPICLONE [Concomitant]
     Active Substance: ZOPICLONE
     Indication: Product used for unknown indication
     Dosage: 3.75 MILLIGRAM, UNK
     Route: 048
     Dates: start: 201502
  51. LACTULOSE [Concomitant]
     Active Substance: LACTULOSE
     Indication: Product used for unknown indication
     Dosage: 15 MILLILITER (15 ML, UNK )
     Route: 048
     Dates: start: 20150127, end: 20150801
  52. ADENOSINE [Concomitant]
     Active Substance: ADENOSINE
     Indication: Product used for unknown indication
     Dosage: UNK, START 08-AUG-2015
     Route: 042
     Dates: end: 20150808
  53. HYALURONIDASE (HUMAN RECOMBINANT) [Concomitant]
     Active Substance: HYALURONIDASE (HUMAN RECOMBINANT)
     Indication: Product used for unknown indication
     Dosage: 600 MILLIGRAM, Q3W (ON 08/MAY/2015, MOST RECENT DOSE)
     Route: 058
     Dates: start: 20150226, end: 20150508
  54. HYALURONIDASE (HUMAN RECOMBINANT) [Concomitant]
     Active Substance: HYALURONIDASE (HUMAN RECOMBINANT)
     Dosage: UNK
  55. HYALURONIDASE (HUMAN RECOMBINANT) [Concomitant]
     Active Substance: HYALURONIDASE (HUMAN RECOMBINANT)
     Dosage: 600 MG (N 08/MAY/2015, MOST RECENT DOSE)
     Route: 058
     Dates: start: 20150226, end: 20150508

REACTIONS (19)
  - Malignant neoplasm progression [Fatal]
  - Sepsis [Recovered/Resolved with Sequelae]
  - Confusional state [Not Recovered/Not Resolved]
  - Malaise [Not Recovered/Not Resolved]
  - Pneumonia [Not Recovered/Not Resolved]
  - Lower respiratory tract infection [Recovered/Resolved with Sequelae]
  - Dyspnoea [Not Recovered/Not Resolved]
  - Supraventricular tachycardia [Recovered/Resolved with Sequelae]
  - Incontinence [Not Recovered/Not Resolved]
  - Dry mouth [Not Recovered/Not Resolved]
  - Nausea [Recovered/Resolved]
  - Rash [Not Recovered/Not Resolved]
  - Dyspepsia [Not Recovered/Not Resolved]
  - Depressed mood [Not Recovered/Not Resolved]
  - Vomiting [Unknown]
  - Headache [Not Recovered/Not Resolved]
  - Tachycardia [Recovered/Resolved with Sequelae]
  - Dizziness [Not Recovered/Not Resolved]
  - Condition aggravated [Not Recovered/Not Resolved]

NARRATIVE: CASE EVENT DATE: 20150410
